FAERS Safety Report 5644334-1 (Version None)
Quarter: 2008Q1

REPORT INFORMATION
  Report Type: 
  Country: None (occurrence: None)
  Receive Date: 20080229
  Receipt Date: 20080225
  Transmission Date: 20080703
  Serious: Yes (Hospitalization)
  Sender: FDA-Public Use
  Company Number: US-BRISTOL-MYERS SQUIBB COMPANY-13887435

PATIENT
  Age: 65 Year
  Sex: Male

DRUGS (3)
  1. COUMADIN [Suspect]
  2. PLAVIX [Suspect]
     Dosage: DISCHARGED ON PLAVIX: 75 MG TWICE DAILY
     Dates: start: 20070101
  3. ASPIRIN [Suspect]
     Route: 048
     Dates: start: 20070201

REACTIONS (5)
  - CARDIAC FAILURE CONGESTIVE [None]
  - CARDIOGENIC SHOCK [None]
  - CHEST PAIN [None]
  - MYOCARDIAL INFARCTION [None]
  - THROMBOSIS IN DEVICE [None]
